FAERS Safety Report 11977850 (Version 2)
Quarter: 2016Q1

REPORT INFORMATION
  Report Type: Spontaneous
  Country: DE (occurrence: DE)
  Receive Date: 20160129
  Receipt Date: 20160209
  Transmission Date: 20160526
  Serious: Yes (Hospitalization, Other)
  Sender: FDA-Public Use
  Company Number: DE-GUERBET LLC-1047096

PATIENT
  Age: 59 Year
  Sex: Female
  Weight: 61 kg

DRUGS (2)
  1. DOTAREM [Suspect]
     Active Substance: GADOTERATE MEGLUMINE
     Indication: BREAST SCAN
     Route: 042
     Dates: start: 20160120, end: 20160120
  2. DOTAREM [Suspect]
     Active Substance: GADOTERATE MEGLUMINE
     Indication: NUCLEAR MAGNETIC RESONANCE IMAGING
     Route: 042
     Dates: start: 20160120, end: 20160120

REACTIONS (7)
  - Cough [Recovered/Resolved]
  - Hypoaesthesia [Recovered/Resolved]
  - Chills [Recovered/Resolved]
  - Epilepsy [None]
  - Dyspnoea [Recovered/Resolved]
  - Swelling face [Recovered/Resolved]
  - Nausea [Recovered/Resolved]

NARRATIVE: CASE EVENT DATE: 20160120
